FAERS Safety Report 5957598-1 (Version None)
Quarter: 2008Q4

REPORT INFORMATION
  Report Type: 
  Country: None (occurrence: None)
  Receive Date: 20081117
  Receipt Date: 20081117
  Transmission Date: 20090506
  Serious: No
  Sender: FDA-Public Use
  Company Number: None

PATIENT
  Age: 4 Year

DRUGS (2)
  1. DERMA-SMOOTHE/FS [Suspect]
     Indication: ECZEMA
     Dosage: 1 TIME
     Dates: start: 20080301
  2. DERMA-SMOOTHE/FS [Suspect]
     Indication: ECZEMA
     Dosage: 1 TIME
     Dates: start: 20080423

REACTIONS (1)
  - RASH [None]
